FAERS Safety Report 9753747 (Version 2)
Quarter: 2015Q3

REPORT INFORMATION
  Report Type: Spontaneous
  Country: US (occurrence: US)
  Receive Date: 20131213
  Receipt Date: 20150805
  Transmission Date: 20151125
  Serious: No
  Sender: FDA-Public Use
  Company Number: US-GILEAD-2010-0026736

PATIENT
  Age: 56 Year
  Sex: Female
  Weight: 98.88 kg

DRUGS (20)
  1. LYRICA [Concomitant]
     Active Substance: PREGABALIN
  2. SIMVASTATIN. [Concomitant]
     Active Substance: SIMVASTATIN
  3. POTASSIUM CHLOR [Concomitant]
  4. FISH OIL [Concomitant]
     Active Substance: FISH OIL
  5. LETAIRIS [Suspect]
     Active Substance: AMBRISENTAN
     Indication: PULMONARY ARTERIAL HYPERTENSION
     Route: 048
     Dates: start: 20090819
  6. FLUXENTINE [Concomitant]
  7. LANOXIN [Concomitant]
     Active Substance: DIGOXIN
  8. MULTIVITAMIN [Concomitant]
     Active Substance: VITAMINS
  9. COREG [Concomitant]
     Active Substance: CARVEDILOL
  10. PRINIVIL [Concomitant]
     Active Substance: LISINOPRIL
  11. FUROSEMIDE. [Concomitant]
     Active Substance: FUROSEMIDE
  12. TRAZODONE [Concomitant]
     Active Substance: TRAZODONE HYDROCHLORIDE
  13. OXYCODONE [Concomitant]
     Active Substance: OXYCODONE
  14. ALBUTEROL. [Concomitant]
     Active Substance: ALBUTEROL
  15. TIZIANIDINE HCL [Concomitant]
  16. METFORMIN HCL [Concomitant]
     Active Substance: METFORMIN HYDROCHLORIDE
  17. LORTAB [Concomitant]
     Active Substance: ACETAMINOPHEN\HYDROCODONE BITARTRATE
  18. ATROVENT INHALER [Concomitant]
  19. TYLENOL PM [Concomitant]
     Active Substance: ACETAMINOPHEN\DIPHENHYDRAMINE
  20. CINNAMON. [Concomitant]
     Active Substance: CINNAMON

REACTIONS (3)
  - Dyspnoea [Unknown]
  - Dizziness [Unknown]
  - Headache [Unknown]

NARRATIVE: CASE EVENT DATE: 20100120
